FAERS Safety Report 9096573 (Version 1)
Quarter: 2013Q1

REPORT INFORMATION
  Report Type: Spontaneous
  Country: IL (occurrence: IL)
  Receive Date: 20130211
  Receipt Date: 20130211
  Transmission Date: 20140127
  Serious: Yes (Hospitalization, Other)
  Sender: FDA-Public Use
  Company Number: PHHY2013IL010450

PATIENT
  Age: 65 Year
  Sex: Female

DRUGS (1)
  1. ACLASTA [Suspect]
     Indication: OSTEOPOROSIS
     Dosage: 5 MG/ 100 ML, UNK
     Route: 042
     Dates: start: 20130127

REACTIONS (5)
  - Atrioventricular block complete [Unknown]
  - Atrioventricular block second degree [Unknown]
  - Atrioventricular block first degree [Unknown]
  - Presyncope [Unknown]
  - Palpitations [Unknown]
